FAERS Safety Report 9654409 (Version 3)
Quarter: 2013Q4

REPORT INFORMATION
  Report Type: Report from Study
  Country: IN (occurrence: IN)
  Receive Date: 20131029
  Receipt Date: 20131120
  Transmission Date: 20140711
  Serious: Yes (Death, Hospitalization)
  Sender: FDA-Public Use
  Company Number: PHHY2013IN121586

PATIENT
  Age: 53 Year
  Sex: Male

DRUGS (2)
  1. SIMULECT [Suspect]
     Indication: RENAL TRANSPLANT
     Dosage: UNK
     Route: 042
     Dates: start: 20130904
  2. ANTIBIOTICS [Concomitant]
     Dosage: UNK UKN, UNK

REACTIONS (7)
  - Death [Fatal]
  - Renal failure acute [Unknown]
  - Anuria [Unknown]
  - Renal impairment [Unknown]
  - Renal artery thrombosis [Unknown]
  - Kidney transplant rejection [Unknown]
  - Drug ineffective [Unknown]
